FAERS Safety Report 5365103-6 (Version None)
Quarter: 2007Q2

REPORT INFORMATION
  Report Type: 
  Country: None (occurrence: None)
  Receive Date: 20070530
  Receipt Date: 20070320
  Transmission Date: 20071010
  Serious: No
  Sender: FDA-Public Use
  Company Number: 2006PV015347

PATIENT
  Age: 58 Year
  Sex: Female

DRUGS (9)
  1. BYETTA [Suspect]
     Dosage: 5 MCG;BID;SC, 5 MCG;BID; SC, 10 MCG;BID;SC
     Route: 058
     Dates: start: 20060501, end: 20060101
  2. BYETTA [Suspect]
     Dosage: 5 MCG;BID;SC, 5 MCG;BID; SC, 10 MCG;BID;SC
     Route: 058
     Dates: start: 20060401, end: 20060501
  3. BYETTA [Suspect]
     Dosage: 5 MCG;BID;SC, 5 MCG;BID; SC, 10 MCG;BID;SC
     Route: 058
     Dates: start: 20060531
  4. AUGMENTIN XR (875 MG) [Suspect]
     Indication: BRONCHITIS
     Dosage: 875 MG;BID;PO
     Route: 048
     Dates: start: 20060530, end: 20060607
  5. ROCEPHIN [Suspect]
     Indication: BRONCHITIS
     Dosage: 1 GM; IM
     Route: 030
     Dates: start: 20060530
  6. ZELNORM [Concomitant]
  7. VICODIN [Concomitant]
  8. PROMETHAZINE W/ CODEINE [Concomitant]
  9. PHENERGAN HCL [Concomitant]

REACTIONS (6)
  - DIARRHOEA [None]
  - DIZZINESS [None]
  - ERUCTATION [None]
  - FREQUENT BOWEL MOVEMENTS [None]
  - HEADACHE [None]
  - NAUSEA [None]
